FAERS Safety Report 7340133-3 (Version None)
Quarter: 2011Q1

REPORT INFORMATION
  Report Type: 
  Country: None (occurrence: None)
  Receive Date: 20110309
  Receipt Date: 20110302
  Transmission Date: 20110831
  Serious: No
  Sender: FDA-Public Use
  Company Number: US-PFIZER INC-2011003197

PATIENT
  Sex: Male
  Weight: 122 kg

DRUGS (3)
  1. GABAPENTIN [Suspect]
     Dosage: 600 MG, 1X/DAY AT NIGHT
     Route: 048
  2. LISINOPRIL [Concomitant]
     Indication: HYPERTENSION
     Dosage: UNK
  3. NEURONTIN [Suspect]
     Dosage: 30 ML, 3X/DAY
     Route: 048
     Dates: start: 20090601

REACTIONS (4)
  - NAUSEA [None]
  - VOMITING [None]
  - PRODUCT TASTE ABNORMAL [None]
  - PRODUCT ODOUR ABNORMAL [None]
